FAERS Safety Report 12284732 (Version 1)
Quarter: 2016Q2

REPORT INFORMATION
  Report Type: Spontaneous
  Country: US (occurrence: US)
  Receive Date: 20160420
  Receipt Date: 20160420
  Transmission Date: 20160815
  Serious: No
  Sender: FDA-Public Use
  Company Number: US-TEVA-644763USA

PATIENT
  Age: 45 Year
  Sex: Female

DRUGS (4)
  1. ZECUITY [Suspect]
     Active Substance: SUMATRIPTAN SUCCINATE
     Route: 062
     Dates: start: 20160305, end: 20160305
  2. ZECUITY [Suspect]
     Active Substance: SUMATRIPTAN SUCCINATE
     Route: 062
     Dates: start: 20160307, end: 20160307
  3. ZECUITY [Suspect]
     Active Substance: SUMATRIPTAN SUCCINATE
     Route: 062
     Dates: start: 20160309, end: 20160309
  4. ZECUITY [Suspect]
     Active Substance: SUMATRIPTAN SUCCINATE
     Route: 062
     Dates: start: 20160308, end: 20160308

REACTIONS (1)
  - Application site erythema [Recovering/Resolving]

NARRATIVE: CASE EVENT DATE: 20160305
